FAERS Safety Report 24416647 (Version 1)
Quarter: 2024Q4

REPORT INFORMATION
  Report Type: Spontaneous
  Country: US (occurrence: US)
  Receive Date: 20241009
  Receipt Date: 20241009
  Transmission Date: 20250115
  Serious: Yes (Life-Threatening, Hospitalization)
  Sender: MYLAN
  Company Number: US-MYLANLABS-2024M1090553

PATIENT
  Age: 84 Year
  Sex: Female

DRUGS (4)
  1. AMIODARONE [Interacting]
     Active Substance: AMIODARONE
     Indication: Atrial fibrillation
     Dosage: UNK
     Route: 065
  2. MOLNUPIRAVIR [Interacting]
     Active Substance: MOLNUPIRAVIR
     Indication: COVID-19
     Dosage: SHE WAS PRESCRIBED ORAL MOLNUPIRAVIR 800MG EVERY 12H FOR FIVE DAYS; SHE WAS PRESCRIBED 40?TOTAL TABL
     Route: 048
  3. MILRINONE [Concomitant]
     Active Substance: MILRINONE
     Indication: Cardiogenic shock
     Dosage: UNK
     Route: 065
  4. FUROSEMIDE [Concomitant]
     Active Substance: FUROSEMIDE
     Indication: Cardiogenic shock
     Dosage: UNK
     Route: 065

REACTIONS (3)
  - Electrocardiogram QT prolonged [Unknown]
  - Torsade de pointes [Unknown]
  - Drug interaction [Unknown]
